FAERS Safety Report 9444350 (Version 1)
Quarter: 2013Q3

REPORT INFORMATION
  Report Type: Report from Study
  Country: US (occurrence: US)
  Receive Date: 20130807
  Receipt Date: 20130807
  Transmission Date: 20140515
  Serious: Yes (Hospitalization, Other)
  Sender: FDA-Public Use
  Company Number: US-ELI_LILLY_AND_COMPANY-US201307010030

PATIENT
  Sex: Female

DRUGS (12)
  1. DULOXETINE HYDROCHLORIDE [Suspect]
     Indication: FIBROMYALGIA
     Dosage: 60 MG, BID
  2. DULOXETINE HYDROCHLORIDE [Suspect]
     Indication: DEPRESSION
     Dosage: 60 MG, UNK
  3. WELLBUTRIN [Concomitant]
  4. ADDERALL [Concomitant]
  5. METHOTREXATE [Concomitant]
  6. REMICAID [Concomitant]
  7. NEURONTIN [Concomitant]
  8. LYRICA [Concomitant]
  9. IMITREX [Concomitant]
  10. ABILIFY [Concomitant]
  11. LAMICTAL [Concomitant]
  12. RELAPAX [Concomitant]

REACTIONS (4)
  - Suicidal ideation [Unknown]
  - Homicidal ideation [Unknown]
  - Feeling abnormal [Unknown]
  - Speech disorder [Unknown]
